FAERS Safety Report 6176622-7 (Version None)
Quarter: 2009Q2

REPORT INFORMATION
  Report Type: 
  Country: None (occurrence: None)
  Receive Date: 20090501
  Receipt Date: 20081016
  Transmission Date: 20091009
  Serious: Yes (Hospitalization, Other)
  Sender: FDA-Public Use
  Company Number: US-ALEXION-A200800221

PATIENT

DRUGS (16)
  1. SOLIRIS [Suspect]
     Indication: PAROXYSMAL NOCTURNAL HAEMOGLOBINURIA
     Route: 042
     Dates: start: 20071203
  2. SOLIRIS [Suspect]
     Dosage: 900 MG, Q2 WEEKS
     Route: 042
  3. FLOMAX [Concomitant]
     Dosage: .4 MG, QD
  4. FINASTERIDE [Concomitant]
     Dosage: 5 MG, QD
  5. POTASSIUM CHLORIDE [Concomitant]
     Dosage: 10 MEQ, QD
  6. ATENOLOL [Concomitant]
     Dosage: 50 MG, QD
  7. FUROSEMIDE [Concomitant]
     Dosage: 80 MG, QD
  8. FUROSEMIDE [Concomitant]
     Dosage: 40-80 MG BID, PRN
  9. LEVOTHYROXINE SODIUM [Concomitant]
     Dosage: 75 UG, QD
  10. VERAPAMIL [Concomitant]
     Dosage: 180 MG, QD
  11. CHLORDIAZEPOXIDE [Concomitant]
     Dosage: 10 MG, QD
  12. GLIPIZIDE [Concomitant]
     Dosage: 5 MG, QD
  13. HUMULIN                            /00646001/ [Concomitant]
     Dosage: SLIDING SCALE
  14. ACETAMINOPHEN AND HYDROCODONE BITARTRATE [Concomitant]
     Dosage: 5/500
  15. ASPIRIN [Concomitant]
     Dosage: 81 MG, QD
  16. PREDNISONE [Concomitant]
     Dosage: 10 MG, QD

REACTIONS (4)
  - ANAEMIA [None]
  - CULTURE URINE POSITIVE [None]
  - METHICILLIN-RESISTANT STAPHYLOCOCCAL AUREUS TEST POSITIVE [None]
  - SEPTIC SHOCK [None]
